FAERS Safety Report 26052004 (Version 1)
Quarter: 2025Q4

REPORT INFORMATION
  Report Type: Spontaneous
  Country: EU (occurrence: EU)
  Receive Date: 20251117
  Receipt Date: 20251117
  Transmission Date: 20260118
  Serious: Yes (Other)
  Sender: BRISTOL-MYERS SQUIBB COMPANY
  Company Number: EU-BRISTOL-MYERS SQUIBB COMPANY-2025-153516

PATIENT
  Age: 35 Year
  Sex: Female
  Weight: 67 kg

DRUGS (2)
  1. TRIAMCINOLONE ACETONIDE [Suspect]
     Active Substance: TRIAMCINOLONE ACETONIDE
     Indication: Morphoea
     Dosage: 0.1% AD 200G; BOTH THIGHS FOR THREE WEEKS
  2. HYDROCORTISONE BUTYRATE [Suspect]
     Active Substance: HYDROCORTISONE BUTYRATE
     Indication: Morphoea
     Dates: start: 202310, end: 202311

REACTIONS (6)
  - Maternal exposure during pregnancy [Recovered/Resolved]
  - Live birth [Unknown]
  - Premature rupture of membranes [Unknown]
  - Induced labour [Unknown]
  - Labour pain [Unknown]
  - Obstructed labour [Unknown]

NARRATIVE: CASE EVENT DATE: 20231101
